FAERS Safety Report 12669266 (Version 1)
Quarter: 2016Q3

REPORT INFORMATION
  Report Type: Spontaneous
  Country: US (occurrence: US)
  Receive Date: 20160819
  Receipt Date: 20160819
  Transmission Date: 20161109
  Serious: Yes (Hospitalization)
  Sender: FDA-Public Use
  Company Number: US-FRESENIUS KABI-FK201605638

PATIENT
  Age: 63 Year
  Sex: Male

DRUGS (1)
  1. MORPHINE (MANUFACTURER UNKNOWN) [Suspect]
     Active Substance: MORPHINE
     Indication: PRODUCT USED FOR UNKNOWN INDICATION
     Route: 065

REACTIONS (5)
  - Hypoxic-ischaemic encephalopathy [Recovered/Resolved with Sequelae]
  - Acute kidney injury [Unknown]
  - Leukoencephalopathy [Recovered/Resolved with Sequelae]
  - Pneumonia aspiration [Unknown]
  - Overdose [Recovered/Resolved with Sequelae]
